FAERS Safety Report 20188051 (Version 1)
Quarter: 2021Q4

REPORT INFORMATION
  Report Type: Spontaneous
  Country: US (occurrence: US)
  Receive Date: 20211215
  Receipt Date: 20211215
  Transmission Date: 20220303
  Serious: Yes (Other)
  Sender: FDA-Public Use
  Company Number: US-PURDUE-USA-2020-0220128

PATIENT

DRUGS (3)
  1. HYDROCODONE BITARTRATE [Suspect]
     Active Substance: HYDROCODONE BITARTRATE
     Indication: Ankle fracture
     Dosage: UNKNOWN
     Route: 065
  2. TYLENOL [Suspect]
     Active Substance: ACETAMINOPHEN
     Indication: Product used for unknown indication
     Dosage: UNKNOWN
     Route: 065
  3. SUBOXONE [Suspect]
     Active Substance: BUPRENORPHINE HYDROCHLORIDE\NALOXONE HYDROCHLORIDE
     Indication: Product used for unknown indication
     Dosage: UNKNOWN
     Route: 065

REACTIONS (5)
  - Drug dependence [Unknown]
  - Illness [Unknown]
  - Ulcer [Unknown]
  - Abdominal pain upper [Unknown]
  - Anxiety [Unknown]

NARRATIVE: CASE EVENT DATE: 20050801
